FAERS Safety Report 5411744-7 (Version None)
Quarter: 2007Q3

REPORT INFORMATION
  Report Type: 
  Country: None (occurrence: None)
  Receive Date: 20070813
  Receipt Date: 20070803
  Transmission Date: 20080115
  Serious: Yes (Other)
  Sender: FDA-Public Use
  Company Number: PHFR2007GB02105

PATIENT
  Age: 69 Year
  Sex: Female

DRUGS (9)
  1. GLEEVEC [Suspect]
     Indication: CHRONIC MYELOID LEUKAEMIA
     Dosage: 300/400 MG PER DAY ALTERNATLY
     Route: 048
     Dates: start: 20061001
  2. FRUSEMIDE [Concomitant]
     Dosage: 100 MG/DAY
     Route: 048
  3. BISOPROLOL [Concomitant]
     Dosage: 5MG/DAY
     Route: 048
  4. ALLOPURINOL [Concomitant]
     Dosage: 100 MG/DAY
     Route: 048
  5. GLICLAZIDE [Concomitant]
     Dosage: 80 MG/DAY
     Route: 048
  6. LIPITOR [Concomitant]
     Dosage: 40 MG/DAY
     Route: 048
  7. ACETYLSALICYLIC ACID SRT [Concomitant]
     Dosage: 75 MG/DAY
     Route: 048
  8. RAMIPRIL [Concomitant]
     Dosage: 10 MG/DAY
     Route: 048
  9. LANTUS [Concomitant]
     Dosage: 20 UNITS MANE
     Route: 058

REACTIONS (3)
  - DRUG INTOLERANCE [None]
  - PULMONARY HYPERTENSION [None]
  - VENTRICULAR DYSFUNCTION [None]
